FAERS Safety Report 9999048 (Version 1)
Quarter: 2014Q1

REPORT INFORMATION
  Report Type: Spontaneous
  Country: US (occurrence: None)
  Receive Date: 20140311
  Receipt Date: 20140311
  Transmission Date: 20141002
  Serious: Yes (Other)
  Sender: FDA-Public Use
  Company Number: None

PATIENT
  Age: 68 Year
  Sex: Male
  Weight: 97.52 kg

DRUGS (6)
  1. ATENOLOL/CHLORTHALIDONE [Suspect]
     Indication: HYPERTENSION
     Route: 048
     Dates: start: 20131003, end: 20131103
  2. ATENOLOL/CHLORTHALIDONE 50/25 [Concomitant]
  3. LISINOPRIL [Concomitant]
  4. METFORMIN [Concomitant]
  5. ASPIRIN [Concomitant]
  6. VITAMIN D [Concomitant]

REACTIONS (2)
  - Hypertension [None]
  - Product substitution issue [None]
